FAERS Safety Report 10551401 (Version 2)
Quarter: 2014Q4

REPORT INFORMATION
  Report Type: Spontaneous
  Country: FR (occurrence: FR)
  Receive Date: 20141029
  Receipt Date: 20141029
  Transmission Date: 20150529
  Serious: Yes (Hospitalization, Other)
  Sender: FDA-Public Use
  Company Number: FR-AMGEN-FRASP2014073208

PATIENT
  Age: 73 Year
  Sex: Female
  Weight: 52 kg

DRUGS (4)
  1. PROLIA [Suspect]
     Active Substance: DENOSUMAB
     Indication: OSTEOPOROSIS
     Dosage: 60 ML, UNK, 1 AMPULE 60ML
     Route: 058
     Dates: start: 20140626
  2. PANTOPRAZOLE                       /01263204/ [Concomitant]
     Indication: GASTRITIS
     Dosage: 40 UNK, UNK
     Route: 048
     Dates: start: 200602
  3. NOROXINE [Concomitant]
     Active Substance: NORFLOXACIN
     Indication: CYSTITIS
     Dosage: UNK
     Dates: start: 20140619
  4. LOXEN                              /00639802/ [Concomitant]
     Active Substance: NICARDIPINE
     Indication: HYPERTENSION
     Dosage: 50/ TWO TIMES
     Route: 048
     Dates: start: 20120129

REACTIONS (8)
  - Drug eruption [Unknown]
  - Pelvic pain [Unknown]
  - Blood prolactin increased [Unknown]
  - Hyperparathyroidism [Not Recovered/Not Resolved]
  - Macular fibrosis [Not Recovered/Not Resolved]
  - Ischaemia [Unknown]
  - Pain in extremity [Unknown]
  - Pigmentation disorder [Not Recovered/Not Resolved]

NARRATIVE: CASE EVENT DATE: 201407
